FAERS Safety Report 5292521-7 (Version None)
Quarter: 2007Q2

REPORT INFORMATION
  Report Type: 
  Country: None (occurrence: None)
  Receive Date: 20070410
  Receipt Date: 20070329
  Transmission Date: 20071010
  Serious: Yes (Other)
  Sender: FDA-Public Use
  Company Number: US-PFIZER INC-2007026202

PATIENT
  Sex: Female
  Weight: 90.7 kg

DRUGS (1)
  1. LYRICA [Suspect]
     Indication: NEURALGIA
     Dosage: DAILY DOSE:125MG
     Dates: start: 20070322, end: 20070327

REACTIONS (9)
  - DEPRESSION [None]
  - DIARRHOEA [None]
  - DYSSTASIA [None]
  - MYDRIASIS [None]
  - NAUSEA [None]
  - NERVOUSNESS [None]
  - SOMNOLENCE [None]
  - THINKING ABNORMAL [None]
  - VOMITING [None]
